FAERS Safety Report 6754430-3 (Version None)
Quarter: 2010Q2

REPORT INFORMATION
  Report Type: 
  Country: None (occurrence: None)
  Receive Date: 20100603
  Receipt Date: 20100528
  Transmission Date: 20101027
  Serious: Yes (Disabling)
  Sender: FDA-Public Use
  Company Number: JP-BAYER-201012642BYL

PATIENT
  Age: 51 Year
  Sex: Male
  Weight: 92 kg

DRUGS (5)
  1. NEXAVAR [Suspect]
     Indication: RENAL CELL CARCINOMA
     Dosage: UNIT DOSE: 200 MG
     Route: 048
     Dates: start: 20080611, end: 20090317
  2. NEXAVAR [Suspect]
     Route: 048
  3. CATLEP [Concomitant]
     Route: 061
     Dates: start: 20080615
  4. MYSLEE [Concomitant]
     Route: 048
     Dates: start: 20080616, end: 20080616
  5. SUTENT [Concomitant]
     Route: 048

REACTIONS (3)
  - ALOPECIA [None]
  - NEPHROTIC SYNDROME [None]
  - PALMAR ERYTHEMA [None]
